FAERS Safety Report 18870522 (Version 1)
Quarter: 2021Q1

REPORT INFORMATION
  Report Type: Spontaneous
  Country: TR (occurrence: TR)
  Receive Date: 20210210
  Receipt Date: 20210210
  Transmission Date: 20210420
  Serious: Yes (Hospitalization, Other)
  Sender: FDA-Public Use
  Company Number: TR-SA-2021SA040504

PATIENT

DRUGS (1)
  1. LEMTRADA [Suspect]
     Active Substance: ALEMTUZUMAB

REACTIONS (5)
  - Petechiae [Unknown]
  - Platelet count decreased [Unknown]
  - Ecchymosis [Unknown]
  - Purpura [Unknown]
  - Immune thrombocytopenia [Unknown]
